FAERS Safety Report 4757719-2 (Version None)
Quarter: 2005Q3

REPORT INFORMATION
  Report Type: 
  Country: None (occurrence: None)
  Receive Date: 20050829
  Receipt Date: 20050822
  Transmission Date: 20060218
  Serious: Yes (Hospitalization, Other)
  Sender: FDA-Public Use
  Company Number: 2005098058

PATIENT
  Age: 50 Year
  Sex: Male
  Weight: 92.0802 kg

DRUGS (1)
  1. DILANTIN [Suspect]
     Indication: GRAND MAL CONVULSION
     Dosage: 400 MG (100 MG,2 IN 1 D), ORAL
     Route: 048
     Dates: start: 19830101

REACTIONS (3)
  - ANTICONVULSANT DRUG LEVEL INCREASED [None]
  - APPENDICITIS [None]
  - BLOOD PRESSURE INCREASED [None]
